FAERS Safety Report 8621941 (Version 2)
Quarter: 2012Q4

REPORT INFORMATION
  Report Type: 
  Country: FR (occurrence: FR)
  Receive Date: 20120619
  Receipt Date: 20120828
  Transmission Date: 20130627
  Serious: Yes (Other)
  Sender: FDA-Public Use
  Company Number: FR-ELI_LILLY_AND_COMPANY-FR201206005104

PATIENT
  Age: 50 Year
  Sex: Male
  Weight: 84 kg

DRUGS (8)
  1. CIALIS [Suspect]
     Indication: ERECTILE DYSFUNCTION
     Dosage: 20 mg, UNK
     Route: 048
     Dates: start: 201201
  2. CIALIS [Suspect]
     Dosage: 1 DF, UNK
     Dates: end: 20120611
  3. FORTZAAR [Concomitant]
     Indication: HYPERTENSION
     Dosage: 1 DF, qd
     Dates: start: 2008
  4. LODOZ [Concomitant]
     Indication: HYPERTENSION
     Dosage: 1 DF, qd
     Dates: start: 2007
  5. PHYSIOTENS [Concomitant]
     Indication: HYPERTENSION
     Dosage: .4 DF, qd
     Dates: start: 2007
  6. EZETROL [Concomitant]
     Indication: HYPERCHOLESTEROLAEMIA
     Dosage: 10 DF, qd
     Dates: start: 2007
  7. KARDEGIC [Concomitant]
     Indication: ARRHYTHMIA
     Dosage: 75 DF, qd
     Dates: start: 2010
  8. ALLOPURINOL [Concomitant]
     Dosage: 1 DF, qd
     Dates: start: 2008

REACTIONS (1)
  - Aggression [Unknown]
